FAERS Safety Report 22824327 (Version 2)
Quarter: 2025Q1

REPORT INFORMATION
  Report Type: Spontaneous
  Country: US (occurrence: US)
  Receive Date: 20230815
  Receipt Date: 20250220
  Transmission Date: 20250409
  Serious: No
  Sender: PFIZER
  Company Number: US-PFIZER INC-202300275714

PATIENT
  Age: 59 Year
  Sex: Female
  Weight: 123.8 kg

DRUGS (2)
  1. CIPROFLOXACIN [Suspect]
     Active Substance: CIPROFLOXACIN
     Dates: start: 20120315
  2. LEVAQUIN [Suspect]
     Active Substance: LEVOFLOXACIN
     Dates: start: 20151009

REACTIONS (3)
  - Arthralgia [Unknown]
  - Paraesthesia [Unknown]
  - Drug hypersensitivity [Unknown]
